FAERS Safety Report 7285798-X (Version None)
Quarter: 2011Q1

REPORT INFORMATION
  Report Type: 
  Country: None (occurrence: None)
  Receive Date: 20110210
  Receipt Date: 20110128
  Transmission Date: 20110831
  Serious: Yes (Hospitalization, Other)
  Sender: FDA-Public Use
  Company Number: US-ACTELION-A-NJ2011-43877

PATIENT

DRUGS (2)
  1. TRACLEER [Suspect]
     Indication: PULMONARY ARTERIAL HYPERTENSION
     Dosage: UNK
     Route: 048
     Dates: start: 20101202, end: 20110101
  2. CALCIUM CHANNEL BLOCKERS [Concomitant]

REACTIONS (4)
  - ATRIAL FLUTTER [None]
  - FLUID RETENTION [None]
  - DYSPNOEA [None]
  - WEIGHT INCREASED [None]
